FAERS Safety Report 15590976 (Version 1)
Quarter: 2018Q4

REPORT INFORMATION
  Report Type: Spontaneous
  Country: US (occurrence: US)
  Receive Date: 20181107
  Receipt Date: 20181107
  Transmission Date: 20190205
  Serious: No
  Sender: FDA-Public Use
  Company Number: US-GLAXOSMITHKLINE-US2018GSK195011

PATIENT
  Sex: Female

DRUGS (1)
  1. IMITREX [Suspect]
     Active Substance: SUMATRIPTAN SUCCINATE
     Indication: MIGRAINE
     Dosage: 20 MG, UNK
     Dates: start: 20180327

REACTIONS (5)
  - Malnutrition [Not Recovered/Not Resolved]
  - Intentional overdose [Unknown]
  - Poor quality sleep [Unknown]
  - Pain [Unknown]
  - Stress [Unknown]
